FAERS Safety Report 19930919 (Version 1)
Quarter: 2021Q4

REPORT INFORMATION
  Report Type: Spontaneous
  Country: FR (occurrence: FR)
  Receive Date: 20211008
  Receipt Date: 20211008
  Transmission Date: 20220304
  Serious: Yes (Other)
  Sender: FDA-Public Use
  Company Number: FR-ABBVIE-21K-056-4108610-00

PATIENT
  Age: 18 Year
  Sex: Female

DRUGS (2)
  1. DEPAKOTE [Suspect]
     Active Substance: DIVALPROEX SODIUM
     Indication: Product used for unknown indication
     Route: 048
  2. TERALITHE [Suspect]
     Active Substance: LITHIUM CARBONATE
     Indication: Product used for unknown indication
     Route: 048

REACTIONS (1)
  - Diabetes insipidus [Not Recovered/Not Resolved]
